FAERS Safety Report 8028588-2 (Version None)
Quarter: 2012Q1

REPORT INFORMATION
  Report Type: 
  Country: None (occurrence: None)
  Receive Date: 20120104
  Receipt Date: 20111226
  Transmission Date: 20120608
  Serious: Yes (Death)
  Sender: FDA-Public Use
  Company Number: 2011SP041307

PATIENT
  Age: 72 Year
  Sex: Female

DRUGS (3)
  1. REBETOL [Suspect]
     Indication: HEPATITIS C
     Dosage: 600 MG;QD;PO
     Route: 048
     Dates: start: 20110706, end: 20110812
  2. PEG-INTRON [Suspect]
     Indication: HEPATITIS C
     Dosage: 80 MCG;QW;SC, 50 MCG;QW;SC
     Route: 058
     Dates: start: 20110713, end: 20110811
  3. PEG-INTRON [Suspect]
     Indication: HEPATITIS C
     Dosage: 80 MCG;QW;SC, 50 MCG;QW;SC
     Route: 058
     Dates: start: 20110706

REACTIONS (3)
  - SUDDEN DEATH [None]
  - RHONCHI [None]
  - MALAISE [None]
